FAERS Safety Report 13023719 (Version 1)
Quarter: 2016Q4

REPORT INFORMATION
  Report Type: Spontaneous
  Country: US (occurrence: US)
  Receive Date: 20161213
  Receipt Date: 20161213
  Transmission Date: 20170207
  Serious: Yes (Other)
  Sender: FDA-Public Use
  Company Number: GXBR2016US003524

PATIENT
  Sex: Female
  Weight: 68.93 kg

DRUGS (2)
  1. DESIPRAMINE HCL TABLETS USP [Suspect]
     Active Substance: DESIPRAMINE HYDROCHLORIDE
     Indication: SLEEP DISORDER
     Dosage: 25 MG, QD
     Route: 048
     Dates: start: 2016
  2. METOPROLOL. [Concomitant]
     Active Substance: METOPROLOL
     Indication: HYPERTENSION
     Dosage: UNK DF, UNK
     Route: 065

REACTIONS (1)
  - Hepatic enzyme increased [Not Recovered/Not Resolved]
